FAERS Safety Report 7255057-X (Version None)
Quarter: 2011Q1

REPORT INFORMATION
  Report Type: 
  Country: None (occurrence: None)
  Receive Date: 20110129
  Receipt Date: 20100308
  Transmission Date: 20110831
  Serious: No
  Sender: FDA-Public Use
  Company Number: US-ABBOTT-10P-163-0630636-00

PATIENT
  Sex: Female
  Weight: 95.34 kg

DRUGS (5)
  1. CALTRATE [Concomitant]
     Indication: MINERAL SUPPLEMENTATION
     Dosage: UNKNOWN
  2. HUMIRA [Suspect]
     Indication: EYE DISORDER
     Dates: start: 20090201
  3. WOMENS ONE A DAY [Concomitant]
     Indication: VITAMIN SUPPLEMENTATION
     Dosage: DAILY
  4. XANAX [Concomitant]
     Indication: ANXIETY
  5. LEXAPRO [Concomitant]
     Indication: ANXIETY

REACTIONS (3)
  - DIARRHOEA [None]
  - ABDOMINAL PAIN [None]
  - DIVERTICULITIS [None]
